FAERS Safety Report 19947861 (Version 1)
Quarter: 2021Q4

REPORT INFORMATION
  Report Type: Spontaneous
  Country: IT (occurrence: IT)
  Receive Date: 20211012
  Receipt Date: 20211012
  Transmission Date: 20220303
  Serious: Yes (Hospitalization, Other)
  Sender: FDA-Public Use
  Company Number: IT-SA-2021SA327796

PATIENT

DRUGS (1)
  1. LIBTAYO [Suspect]
     Active Substance: CEMIPLIMAB-RWLC
     Indication: Squamous cell carcinoma of skin
     Dosage: 350 MG, Q3W
     Route: 042

REACTIONS (5)
  - Squamous cell carcinoma of skin [Unknown]
  - Encephalitis autoimmune [Unknown]
  - Aphasia [Unknown]
  - Disease progression [Unknown]
  - Confusional state [Unknown]
